FAERS Safety Report 11820098 (Version 1)
Quarter: 2015Q4

REPORT INFORMATION
  Report Type: Spontaneous
  Country: US (occurrence: None)
  Receive Date: 20151209
  Receipt Date: 20151209
  Transmission Date: 20160305
  Serious: Yes (Hospitalization, Other)
  Sender: FDA-Public Use
  Company Number: 2015RIS00167

PATIENT
  Age: 2 Year
  Sex: Female

DRUGS (1)
  1. PHENOBARBITAL. [Suspect]
     Active Substance: PHENOBARBITAL

REACTIONS (4)
  - Drug reaction with eosinophilia and systemic symptoms [None]
  - Acute kidney injury [None]
  - Myocarditis [None]
  - Lactic acidosis [None]
